FAERS Safety Report 21785032 (Version 1)
Quarter: 2022Q4

REPORT INFORMATION
  Report Type: Spontaneous
  Country: AT (occurrence: AT)
  Receive Date: 20221227
  Receipt Date: 20221227
  Transmission Date: 20230113
  Serious: Yes (Other)
  Sender: FDA-Public Use
  Company Number: None

PATIENT
  Age: 47 Year
  Sex: Female

DRUGS (7)
  1. LORAZEPAM [Suspect]
     Active Substance: LORAZEPAM
     Dosage: 10 MG
     Dates: start: 20221113
  2. RISPERDAL [Suspect]
     Active Substance: RISPERIDONE
     Dosage: 8 MG
     Dates: start: 20221113, end: 20221114
  3. LAMOTRIGINE [Suspect]
     Active Substance: LAMOTRIGINE
     Dosage: 25 MG
     Dates: start: 20221106, end: 20221114
  4. HALDOL [Concomitant]
     Active Substance: HALOPERIDOL
     Dosage: 10 MG
     Dates: start: 20221108, end: 20221112
  5. HALDOL [Concomitant]
     Active Substance: HALOPERIDOL
     Dosage: 10 MG
     Dates: start: 20221104, end: 20221105
  6. LORAZEPAM [Concomitant]
     Active Substance: LORAZEPAM
     Dosage: 10 MG (AMPILLEN)
     Dates: start: 20221103, end: 20221112
  7. FERROUS SULFATE [Concomitant]
     Active Substance: FERROUS SULFATE
     Dosage: 80 MG
     Dates: start: 20221109

REACTIONS (1)
  - Speech disorder [Recovered/Resolved]

NARRATIVE: CASE EVENT DATE: 20221114
